FAERS Safety Report 16898764 (Version 1)
Quarter: 2019Q4

REPORT INFORMATION
  Report Type: Spontaneous
  Country: US (occurrence: US)
  Receive Date: 20191008
  Receipt Date: 20191008
  Transmission Date: 20200122
  Serious: Yes (Other)
  Sender: FDA-Public Use
  Company Number: None

PATIENT
  Age: 54 Year
  Sex: Female
  Weight: 53.1 kg

DRUGS (3)
  1. BABY ASPIRIN [Concomitant]
     Active Substance: ASPIRIN
  2. METROPROLOL [Concomitant]
     Active Substance: METOPROLOL
  3. REPATHA [Suspect]
     Active Substance: EVOLOCUMAB
     Indication: BLOOD CHOLESTEROL INCREASED
     Dosage: ?          QUANTITY:1 INJECTION(S);OTHER FREQUENCY:EVERY TWO WEEKS;OTHER ROUTE:STOMACH INJECTION?
     Dates: start: 20190522, end: 20190925

REACTIONS (9)
  - Pelvic pain [None]
  - Urinary tract infection [None]
  - Quality of life decreased [None]
  - Loss of personal independence in daily activities [None]
  - Back pain [None]
  - Dysuria [None]
  - Dysmenorrhoea [None]
  - Urinary straining [None]
  - Cystitis [None]

NARRATIVE: CASE EVENT DATE: 20190927
